FAERS Safety Report 4373020-3 (Version None)
Quarter: 2004Q2

REPORT INFORMATION
  Report Type: 
  Country: None (occurrence: None)
  Receive Date: 20040603
  Receipt Date: 20040518
  Transmission Date: 20050107
  Serious: Yes (Hospitalization)
  Sender: FDA-Public Use
  Company Number: USA040567962

PATIENT
  Age: 78 Year
  Sex: Female

DRUGS (2)
  1. FORTEO [Suspect]
     Indication: OSTEOPOROSIS
     Dates: start: 20040428
  2. THYROID MEDICINE [Concomitant]

REACTIONS (3)
  - BACTERIAL INFECTION [None]
  - ENTEROCOLITIS [None]
  - PHARMACEUTICAL PRODUCT COMPLAINT [None]
